FAERS Safety Report 4670239-9 (Version None)
Quarter: 2005Q2

REPORT INFORMATION
  Report Type: 
  Country: None (occurrence: None)
  Receive Date: 20050520
  Receipt Date: 20050511
  Transmission Date: 20051028
  Serious: Yes (Hospitalization)
  Sender: FDA-Public Use
  Company Number: 211793

PATIENT
  Age: 77 Year
  Sex: Male
  Weight: 92.1 kg

DRUGS (7)
  1. AVASTIN [Suspect]
     Indication: COLORECTAL CANCER METASTATIC
     Dosage: 5 MG, Q2W, INTRAVENOUS
     Route: 042
     Dates: start: 20041101
  2. DIGITEX (DIGOXIN) [Concomitant]
  3. LASIX [Concomitant]
  4. METOPROLOL TARTRATE [Concomitant]
  5. NIFEREX (POLYSACCHARIDE-IRON COMPLEX) [Concomitant]
  6. PEPCID AC [Concomitant]
  7. MEGACE [Concomitant]

REACTIONS (16)
  - ACUTE MYOCARDIAL INFARCTION [None]
  - ATRIAL FIBRILLATION [None]
  - BLOOD CREATININE INCREASED [None]
  - BLOOD GLUCOSE INCREASED [None]
  - BLOOD POTASSIUM DECREASED [None]
  - BLOOD PRESSURE INCREASED [None]
  - CARDIOACTIVE DRUG LEVEL DECREASED [None]
  - CEREBRAL ATROPHY [None]
  - GRAND MAL CONVULSION [None]
  - LOSS OF CONSCIOUSNESS [None]
  - LUNG INFILTRATION [None]
  - MENINGITIS [None]
  - RESPIRATORY DISTRESS [None]
  - RESPIRATORY RATE INCREASED [None]
  - SUPRAVENTRICULAR TACHYCARDIA [None]
  - UNRESPONSIVE TO VERBAL STIMULI [None]
